FAERS Safety Report 9759280 (Version 1)
Quarter: 2013Q4

REPORT INFORMATION
  Report Type: Spontaneous
  Country: US (occurrence: None)
  Receive Date: 20131216
  Receipt Date: 20131216
  Transmission Date: 20140711
  Serious: Yes (Other)
  Sender: FDA-Public Use
  Company Number: 163-21880-12111348(0)

PATIENT
  Age: 70 Year
  Sex: Male

DRUGS (1)
  1. REVLIMID (LENALIDOMIDE) (5 MILLIGRAM CAPSULES) [Suspect]
     Indication: MYELODYSPLASTIC SYNDROME
     Dosage: 5 MG, 28 IN 28 D PO? ? ?

REACTIONS (4)
  - Rash [None]
  - Pruritus [None]
  - Dry skin [None]
  - Fatigue [None]
